FAERS Safety Report 22101607 (Version 2)
Quarter: 2024Q4

REPORT INFORMATION
  Report Type: Report from Study
  Country: BR (occurrence: BR)
  Receive Date: 20230316
  Receipt Date: 20241023
  Transmission Date: 20250115
  Serious: No
  Sender: CELLTRION
  Company Number: BR-CELLTRION INC.-2023BR005455

PATIENT

DRUGS (1)
  1. TRUXIMA [Suspect]
     Active Substance: RITUXIMAB-ABBS
     Indication: Systemic lupus erythematosus
     Route: 042

REACTIONS (1)
  - Off label use [Unknown]
